FAERS Safety Report 8063218-5 (Version None)
Quarter: 2012Q1

REPORT INFORMATION
  Report Type: 
  Country: None (occurrence: None)
  Receive Date: 20120123
  Receipt Date: 20120119
  Transmission Date: 20120608
  Serious: Yes (Life-Threatening, Hospitalization)
  Sender: FDA-Public Use
  Company Number: PHEH2011US009639

PATIENT
  Sex: Male
  Weight: 85.261 kg

DRUGS (14)
  1. ASPIRIN [Concomitant]
  2. PULMICORT-100 [Concomitant]
  3. COREG [Concomitant]
  4. FLONAX [Concomitant]
  5. SIMVASTATIN [Concomitant]
  6. EXJADE [Suspect]
     Indication: IRON OVERLOAD
     Dosage: 500 MG, BID
     Route: 048
     Dates: start: 20110810, end: 20111110
  7. MEGACE [Concomitant]
  8. PLAVIX [Concomitant]
  9. MUCINEX [Concomitant]
  10. MIRALAX [Concomitant]
  11. PROCARDIA [Concomitant]
  12. PROTONIX [Concomitant]
  13. ALBUTEROL [Concomitant]
  14. NEURONTIN [Concomitant]

REACTIONS (1)
  - ACUTE MYOCARDIAL INFARCTION [None]
